FAERS Safety Report 23982930 (Version 9)
Quarter: 2025Q4

REPORT INFORMATION
  Report Type: Report from Study
  Country: CA (occurrence: CA)
  Receive Date: 20240617
  Receipt Date: 20251127
  Transmission Date: 20260117
  Serious: Yes (Other)
  Sender: BAUSCH AND LOMB
  Company Number: CA-BAUSCH-BL-2024-009156

PATIENT
  Age: 67 Year
  Sex: Male

DRUGS (4)
  1. SILIQ [Suspect]
     Active Substance: BRODALUMAB
     Indication: Psoriasis
     Dosage: 210MG/1.5ML, (WEEK 0 TO WEEK 2)
     Route: 058
     Dates: start: 20220802, end: 2022
  2. SILIQ [Suspect]
     Active Substance: BRODALUMAB
     Dosage: 210MG/1.5ML, Q2 WEEKS
     Route: 058
     Dates: start: 2022, end: 20241017
  3. SILIQ [Suspect]
     Active Substance: BRODALUMAB
     Dosage: 210MG/1.5ML, Q2 WEEKS
     Route: 058
     Dates: start: 20241114, end: 20241212
  4. SILIQ [Suspect]
     Active Substance: BRODALUMAB
     Dosage: 210 MG/1.5 ML, Q2 WEEKS
     Route: 058
     Dates: start: 20250109

REACTIONS (5)
  - Cataract [Unknown]
  - Eyelid disorder [Unknown]
  - Psoriasis [Unknown]
  - Therapy interrupted [Unknown]
  - Inappropriate schedule of product administration [Unknown]

NARRATIVE: CASE EVENT DATE: 20240101
